FAERS Safety Report 4706489-2 (Version None)
Quarter: 2005Q3

REPORT INFORMATION
  Report Type: 
  Country: None (occurrence: None)
  Receive Date: 20050705
  Receipt Date: 20050606
  Transmission Date: 20060218
  Serious: Yes (Hospitalization)
  Sender: FDA-Public Use
  Company Number: JP-GLAXOSMITHKLINE-B0385822A

PATIENT
  Age: 82 Year
  Sex: Female
  Weight: 41 kg

DRUGS (2)
  1. ZOVIRAX [Suspect]
     Indication: HERPES ZOSTER
     Dosage: 160MG FIVE TIMES PER DAY
     Route: 048
     Dates: start: 20050512, end: 20050516
  2. ROCEPHIN [Concomitant]
     Indication: APPENDICITIS
     Dosage: 2G PER DAY
     Route: 042
     Dates: start: 20050512, end: 20050516

REACTIONS (8)
  - ABNORMAL BEHAVIOUR [None]
  - APHASIA [None]
  - COMMUNICATION DISORDER [None]
  - CONFUSIONAL STATE [None]
  - DEPRESSED LEVEL OF CONSCIOUSNESS [None]
  - DYSKINESIA [None]
  - EYE MOVEMENT DISORDER [None]
  - SPEECH DISORDER [None]
